FAERS Safety Report 14071753 (Version 4)
Quarter: 2020Q1

REPORT INFORMATION
  Report Type: Spontaneous
  Country: US (occurrence: US)
  Receive Date: 20171010
  Receipt Date: 20200129
  Transmission Date: 20200409
  Serious: Yes (Hospitalization, Other)
  Sender: FDA-Public Use
  Company Number: US-SA-2017SA153831

PATIENT
  Age: 59 Year
  Sex: Female

DRUGS (12)
  1. EZETIMIBE. [Concomitant]
     Active Substance: EZETIMIBE
  2. PANTOPRAZOLE SODIUM. [Concomitant]
     Active Substance: PANTOPRAZOLE SODIUM
  3. CARTIA [ACETYLSALICYLIC ACID] [Concomitant]
     Active Substance: ASPIRIN
  4. VENTOLIN HFA [Concomitant]
     Active Substance: ALBUTEROL SULFATE
  5. CARVEDILOL. [Concomitant]
     Active Substance: CARVEDILOL
  6. HYDROXYZINE HCL [Concomitant]
     Active Substance: HYDROXYZINE HYDROCHLORIDE
  7. ETODOLAC. [Concomitant]
     Active Substance: ETODOLAC
  8. EUCRISA [Concomitant]
     Active Substance: CRISABOROLE
  9. CYCLOBENZAPRINE. [Concomitant]
     Active Substance: CYCLOBENZAPRINE
  10. DUPIXENT [Suspect]
     Active Substance: DUPILUMAB
     Indication: DERMATITIS ATOPIC
     Dosage: 1 DF,QOW
     Route: 058
     Dates: start: 20170524
  11. DILTIAZEM. [Concomitant]
     Active Substance: DILTIAZEM
  12. LEVOCETIRIZINE DIHYDROCHLORIDE. [Concomitant]
     Active Substance: LEVOCETIRIZINE DIHYDROCHLORIDE

REACTIONS (5)
  - Haemoptysis [Unknown]
  - Pneumonia [Unknown]
  - Influenza [Unknown]
  - Dermatitis atopic [Recovered/Resolved]
  - Pneumothorax [Unknown]
